FAERS Safety Report 7565279-6 (Version None)
Quarter: 2011Q2

REPORT INFORMATION
  Report Type: 
  Country: None (occurrence: None)
  Receive Date: 20110622
  Receipt Date: 20110620
  Transmission Date: 20111010
  Serious: Yes (Hospitalization)
  Sender: FDA-Public Use
  Company Number: US-AMGEN-USASP2011029182

PATIENT
  Age: 62 Year
  Sex: Male
  Weight: 113.38 kg

DRUGS (19)
  1. DULOXETINE HYDROCHLORIDE [Concomitant]
     Dosage: UNK
  2. PREGABALIN [Concomitant]
     Dosage: UNK
  3. OXYCODONE HCL [Concomitant]
     Dosage: UNK
  4. LEFLUNOMIDE [Concomitant]
     Dosage: UNK
  5. ZOLPIDEM TARTRATE [Concomitant]
     Dosage: UNK
  6. ENBREL [Suspect]
     Indication: PRODUCT USED FOR UNKNOWN INDICATION
     Dosage: UNK
  7. ESOMEPRAZOLE MAGNESIUM [Concomitant]
     Dosage: UNK
  8. LEVOTHYROXINE SODIUM [Concomitant]
     Dosage: UNK
  9. METFFORMIN HYDROCHLORIDE [Concomitant]
     Dosage: UNK
  10. ROSUVASTATIN [Concomitant]
     Dosage: UNK
  11. LORAZEPAM [Concomitant]
     Dosage: UNK
  12. PREDNISONE [Concomitant]
     Dosage: UNK
  13. COLECALCIFEROL [Concomitant]
     Dosage: UNK
  14. HUMIRA [Concomitant]
     Dosage: 40 MG, Q2WK
     Dates: start: 20110401
  15. CLOPIDOGREL [Concomitant]
     Dosage: UNK
  16. CELECOXIB [Concomitant]
     Dosage: UNK
  17. ISOSORBIDE MONONITRATE [Concomitant]
     Dosage: UNK
  18. GLIMEPIRIDE [Concomitant]
     Dosage: UNK
  19. ATENOLOL [Concomitant]
     Dosage: UNK

REACTIONS (5)
  - ANAEMIA [None]
  - AORTIC ANEURYSM [None]
  - DRUG INEFFECTIVE [None]
  - CARDIAC ANEURYSM [None]
  - RECTAL HAEMORRHAGE [None]
